FAERS Safety Report 10424889 (Version 1)
Quarter: 2014Q3

REPORT INFORMATION
  Report Type: Spontaneous
  Country: US (occurrence: None)
  Receive Date: 20140725
  Receipt Date: 20140725
  Transmission Date: 20150326
  Serious: No
  Sender: FDA-Public Use
  Company Number: AP356-00764-SPO-US

PATIENT
  Age: 52 Year
  Sex: Female
  Weight: 100 kg

DRUGS (3)
  1. OLMESARTAN MEDOXOMIL [Concomitant]
     Active Substance: OLMESARTAN MEDOXOMIL
  2. BELVIQ [Suspect]
     Active Substance: LORCASERIN HYDROCHLORIDE
     Indication: WEIGHT DECREASED
     Route: 048
     Dates: start: 20140513, end: 20140513
  3. BENICAR [Concomitant]
     Active Substance: OLMESARTAN MEDOXOMIL

REACTIONS (3)
  - Fatigue [None]
  - Headache [None]
  - Hypotension [None]

NARRATIVE: CASE EVENT DATE: 20140514
